FAERS Safety Report 6980586-3 (Version None)
Quarter: 2010Q3

REPORT INFORMATION
  Report Type: 
  Country: None (occurrence: None)
  Receive Date: 20100914
  Receipt Date: 20100812
  Transmission Date: 20110219
  Serious: Yes (Other)
  Sender: FDA-Public Use
  Company Number: US-JNJFOC-20100903024

PATIENT
  Age: 10 Year
  Sex: Male

DRUGS (2)
  1. JUNIOR STRENGTH TYLENOL [Suspect]
     Route: 048
  2. JUNIOR STRENGTH TYLENOL [Suspect]
     Indication: PYREXIA
     Route: 048

REACTIONS (2)
  - HALLUCINATION [None]
  - SOMNAMBULISM [None]
